FAERS Safety Report 12593216 (Version 1)
Quarter: 2016Q3

REPORT INFORMATION
  Report Type: Spontaneous
  Country: US (occurrence: US)
  Receive Date: 20160726
  Receipt Date: 20160726
  Transmission Date: 20161109
  Serious: No
  Sender: FDA-Public Use
  Company Number: US-ABBVIE-16P-163-1634967-00

PATIENT
  Age: 58 Year
  Sex: Male
  Weight: 79.45 kg

DRUGS (10)
  1. SYNTHROID [Suspect]
     Active Substance: LEVOTHYROXINE SODIUM
     Indication: HYPOTHYROIDISM
     Route: 048
     Dates: start: 201604, end: 201605
  2. CALCIUM [Concomitant]
     Active Substance: CALCIUM
     Indication: PRODUCT USED FOR UNKNOWN INDICATION
  3. TESTOSTERONE. [Suspect]
     Active Substance: TESTOSTERONE
     Indication: BLOOD TESTOSTERONE DECREASED
     Dosage: 1 PERCENT GEL
     Route: 061
     Dates: start: 201603
  4. MULTIVITAMIN [Concomitant]
     Active Substance: VITAMINS
     Indication: PRODUCT USED FOR UNKNOWN INDICATION
  5. SYNTHROID [Suspect]
     Active Substance: LEVOTHYROXINE SODIUM
     Dosage: ONE TABLET EVERY OTHER DAY ALTERNATING WITH SYNTHROID 112MCG
     Route: 048
     Dates: start: 201605
  6. VITAMIN D [Concomitant]
     Active Substance: CHOLECALCIFEROL
     Indication: PRODUCT USED FOR UNKNOWN INDICATION
  7. CELEBREX [Concomitant]
     Active Substance: CELECOXIB
     Indication: ARTHRALGIA
  8. SYNTHROID [Suspect]
     Active Substance: LEVOTHYROXINE SODIUM
     Dosage: ONE TABLET EVERY OTHER DAY ALTERNATING WITH SYNTHROID 100MCG
     Route: 048
     Dates: start: 201605
  9. SYNTHROID [Suspect]
     Active Substance: LEVOTHYROXINE SODIUM
     Indication: HYPOTHYROIDISM
     Route: 048
     Dates: end: 201604
  10. TUMERIC [Concomitant]
     Active Substance: TURMERIC
     Indication: ARTHRALGIA

REACTIONS (10)
  - Abdominal pain upper [Recovering/Resolving]
  - Blood thyroid stimulating hormone decreased [Recovering/Resolving]
  - Lethargy [Recovering/Resolving]
  - Fatigue [Recovering/Resolving]
  - Blood testosterone decreased [Unknown]
  - Psychomotor hyperactivity [Recovering/Resolving]
  - Anxiety [Recovering/Resolving]
  - Impaired gastric emptying [Recovering/Resolving]
  - Hot flush [Recovering/Resolving]
  - Insomnia [Recovering/Resolving]

NARRATIVE: CASE EVENT DATE: 201603
